FAERS Safety Report 4543208-7 (Version None)
Quarter: 2005Q1

REPORT INFORMATION
  Report Type: 
  Country: None (occurrence: None)
  Receive Date: 20050103
  Receipt Date: 20020819
  Transmission Date: 20050727
  Serious: Yes (Hospitalization)
  Sender: FDA-Public Use
  Company Number: 200217057GDDC

PATIENT
  Age: 31 Year
  Sex: Female

DRUGS (4)
  1. RIFAMPICIN [Suspect]
     Indication: TUBERCULOID LEPROSY
     Dates: start: 20000101
  2. PREDNISOLONE [Suspect]
     Indication: NEURITIS
  3. DAPSONE [Suspect]
     Indication: TUBERCULOID LEPROSY
  4. CYCLOSPORINE [Suspect]
     Indication: TUBERCULOID LEPROSY
     Dates: start: 20000101

REACTIONS (10)
  - ABSCESS [None]
  - ANAEMIA [None]
  - BLOOD CREATININE INCREASED [None]
  - DIARRHOEA [None]
  - DUODENAL ULCER PERFORATION [None]
  - HAEMOLYSIS [None]
  - JAUNDICE [None]
  - NERVOUS SYSTEM DISORDER [None]
  - RENAL FAILURE ACUTE [None]
  - VOMITING [None]
